FAERS Safety Report 6270538-3 (Version None)
Quarter: 2009Q3

REPORT INFORMATION
  Report Type: 
  Country: None (occurrence: None)
  Receive Date: 20090716
  Receipt Date: 20090707
  Transmission Date: 20100115
  Serious: Yes (Hospitalization)
  Sender: FDA-Public Use
  Company Number: BR-PFIZER INC-2009237253

PATIENT
  Age: 65 Year

DRUGS (10)
  1. SUNITINIB MALATE [Suspect]
     Indication: METASTATIC RENAL CELL CARCINOMA
     Dosage: 50 MG, 1X/DAY
     Route: 048
     Dates: start: 20060531
  2. ALOPURINOL ^BELUPO^ [Concomitant]
     Dosage: UNK
     Dates: start: 20080925
  3. BUSCOPAN [Concomitant]
     Dosage: UNK
     Dates: start: 20081118
  4. DICLOFENAC POTASSIUM [Concomitant]
     Dosage: UNK
     Dates: start: 20090205
  5. CAPTOPRIL [Concomitant]
     Dosage: UNK
     Dates: start: 20080316
  6. PARACETAMOL [Concomitant]
     Dosage: UNK
     Dates: start: 20080227
  7. HYDROCHLOROTHIAZIDE [Concomitant]
     Dosage: UNK
     Dates: start: 20070307
  8. PHENOBARBITAL [Concomitant]
     Dosage: UNK
     Dates: start: 20070331
  9. LEVOTHYROXINE [Concomitant]
     Dosage: UNK
     Dates: start: 20070502
  10. OMEPRAZOLE [Concomitant]
     Dosage: UNK
     Dates: start: 20060531

REACTIONS (2)
  - PNEUMONIA [None]
  - RENAL FAILURE [None]
